FAERS Safety Report 15760412 (Version 1)
Quarter: 2018Q4

REPORT INFORMATION
  Report Type: Report from Study
  Country: US (occurrence: US)
  Receive Date: 20181226
  Receipt Date: 20181226
  Transmission Date: 20190205
  Serious: Yes (Other)
  Sender: FDA-Public Use
  Company Number: US-ROCHE-2005137

PATIENT
  Sex: Female
  Weight: 30.6 kg

DRUGS (3)
  1. NUTROPIN AQ [Suspect]
     Active Substance: SOMATROPIN
     Indication: HYPOPITUITARISM
     Route: 058
  2. NUTROPIN AQ [Suspect]
     Active Substance: SOMATROPIN
     Dosage: ONGOING: YES, NUSPIN 20 (20 MG/2ML) 0.2 MG DOSING INCREMENTS, 7 INJECTIONS PER WEEK, DISPENSED 1 MON
     Route: 058
     Dates: start: 201606
  3. CLARITIN [Concomitant]
     Active Substance: LORATADINE

REACTIONS (7)
  - Septo-optic dysplasia [Unknown]
  - Cough [Unknown]
  - Dizziness [Unknown]
  - Dyskinesia [Unknown]
  - Nystagmus [Unknown]
  - Nausea [Unknown]
  - Constipation [Unknown]
